FAERS Safety Report 25553197 (Version 1)
Quarter: 2025Q3

REPORT INFORMATION
  Report Type: Spontaneous
  Country: US (occurrence: US)
  Receive Date: 20250715
  Receipt Date: 20250715
  Transmission Date: 20251021
  Serious: No
  Sender: ALEXION PHARMACEUTICALS
  Company Number: US-AstraZeneca-CH-00908480A

PATIENT
  Age: 81 Year
  Sex: Female
  Weight: 62 kg

DRUGS (12)
  1. FASENRA [Suspect]
     Active Substance: BENRALIZUMAB
     Indication: Asthma
     Dosage: 30 MILLILITRE PER KILOGRAM, Q8W
     Route: 065
     Dates: start: 20220503
  2. FASENRA [Suspect]
     Active Substance: BENRALIZUMAB
  3. SYMBICORT [Concomitant]
     Active Substance: BUDESONIDE\FORMOTEROL FUMARATE DIHYDRATE
     Route: 065
  4. ATORVASTATIN [Concomitant]
     Active Substance: ATORVASTATIN
     Route: 065
  5. BENZONATATE [Concomitant]
     Active Substance: BENZONATATE
     Route: 065
  6. LEVSIN [Concomitant]
     Active Substance: HYOSCYAMINE SULFATE
     Route: 065
  7. MONTELUKAST [Concomitant]
     Active Substance: MONTELUKAST
     Route: 065
  8. OMEGA 3 [Concomitant]
     Active Substance: CAPSAICIN
     Route: 065
  9. PROTONIX [Concomitant]
     Active Substance: PANTOPRAZOLE SODIUM
     Route: 065
  10. VITAMIN B12 [Concomitant]
     Active Substance: CYANOCOBALAMIN
     Route: 065
  11. ALL DAY ALLERGY [Concomitant]
     Active Substance: CETIRIZINE HYDROCHLORIDE
  12. ACIDOPHILUS [Concomitant]
     Active Substance: LACTOBACILLUS ACIDOPHILUS

REACTIONS (1)
  - Pruritus [Unknown]

NARRATIVE: CASE EVENT DATE: 20250501
